FAERS Safety Report 16077240 (Version 1)
Quarter: 2019Q1

REPORT INFORMATION
  Report Type: Spontaneous
  Country: US (occurrence: US)
  Receive Date: 20190315
  Receipt Date: 20190315
  Transmission Date: 20190418
  Serious: No
  Sender: FDA-Public Use
  Company Number: US-ENDO PHARMACEUTICALS INC-2018-042946

PATIENT
  Sex: Female

DRUGS (1)
  1. PROMETHAZINE DM [Suspect]
     Active Substance: DEXTROMETHORPHAN HYDROBROMIDE\PROMETHAZINE HYDROCHLORIDE
     Indication: COUGH
     Dosage: UNK, UNKNOWN
     Route: 065

REACTIONS (1)
  - Adverse drug reaction [Unknown]
